FAERS Safety Report 15754804 (Version 1)
Quarter: 2018Q4

REPORT INFORMATION
  Report Type: Spontaneous
  Country: HU (occurrence: HU)
  Receive Date: 20181224
  Receipt Date: 20181224
  Transmission Date: 20190205
  Serious: Yes (Disabling, Other)
  Sender: FDA-Public Use
  Company Number: HU-TEVA-2018-HU-990269

PATIENT
  Age: 73 Year
  Sex: Female

DRUGS (2)
  1. LETROX [Concomitant]
     Active Substance: LEVOTHYROXINE SODIUM
     Indication: THYROID HORMONE REPLACEMENT THERAPY
     Dosage: 100 MICROGRAM DAILY;
     Route: 065
  2. LEFLOKIN [Suspect]
     Active Substance: LEVOFLOXACIN
     Indication: BRONCHITIS
     Dosage: 500 MILLIGRAM DAILY;
     Route: 048
     Dates: start: 20180920, end: 20180922

REACTIONS (4)
  - Insomnia [Recovered/Resolved]
  - Depression [Recovered/Resolved]
  - Gait inability [Recovered/Resolved]
  - Myositis [Recovered/Resolved]

NARRATIVE: CASE EVENT DATE: 20180922
